FAERS Safety Report 12136838 (Version 1)
Quarter: 2016Q1

REPORT INFORMATION
  Report Type: Spontaneous
  Country: US (occurrence: None)
  Receive Date: 20160301
  Receipt Date: 20160301
  Transmission Date: 20160526
  Serious: Yes (Hospitalization)
  Sender: FDA-Public Use
  Company Number: None

PATIENT
  Age: 44 Year
  Sex: Male
  Weight: 90.3 kg

DRUGS (1)
  1. IBUPROFEN. [Suspect]
     Active Substance: IBUPROFEN
     Indication: PAIN
     Route: 048
     Dates: start: 20140714, end: 20150117

REACTIONS (5)
  - Gastrointestinal haemorrhage [None]
  - Duodenal ulcer [None]
  - Haemoglobin decreased [None]
  - Gastric ulcer [None]
  - Melaena [None]

NARRATIVE: CASE EVENT DATE: 20150117
